FAERS Safety Report 8102290-0 (Version None)
Quarter: 2012Q1

REPORT INFORMATION
  Report Type: 
  Country: None (occurrence: None)
  Receive Date: 20120131
  Receipt Date: 20120131
  Transmission Date: 20120608
  Serious: Yes (Other)
  Sender: FDA-Public Use
  Company Number: None

PATIENT
  Sex: Female
  Weight: 76.6579 kg

DRUGS (1)
  1. FRESHKOTE FOCUS LABORATORIES [Suspect]
     Dosage: 1 DROP 4 TIMES DAILY 4 X DAY
     Dates: start: 20111215

REACTIONS (4)
  - PHOTOPHOBIA [None]
  - INFLAMMATION [None]
  - CORNEAL OEDEMA [None]
  - VISION BLURRED [None]
